FAERS Safety Report 13492099 (Version 6)
Quarter: 2021Q2

REPORT INFORMATION
  Report Type: Spontaneous
  Country: US (occurrence: US)
  Receive Date: 20170427
  Receipt Date: 20210604
  Transmission Date: 20210716
  Serious: No
  Sender: FDA-Public Use
  Company Number: US-009507513-1704USA006517

PATIENT
  Age: 58 Year
  Sex: Female

DRUGS (7)
  1. INTRON A [Suspect]
     Active Substance: INTERFERON ALFA-2B
     Indication: MALIGNANT MELANOMA
     Dosage: STRENGTH: 18 MILION IU/ 3 ML, DOSE: 750 000 UNITS (0.04 ML), DAILY (QD)
  2. INTRON A [Suspect]
     Active Substance: INTERFERON ALFA-2B
     Dosage: STRENGTH: 18 MILION IU/ 3 ML, DOSE: 750 000 UNITS (12.5 UNITS ON SYRINGE), DAILY (QD)
     Route: 058
  3. INTRON A [Suspect]
     Active Substance: INTERFERON ALFA-2B
     Dosage: STRENGTH: 25 MU, 2.5 ML MDV, 750,000 UNITS (0.075ML OR 7.5 UNITS) EVERY NIGHT AT BEDTIME.DISCARD 30
     Route: 058
     Dates: start: 20170413
  4. INTRON A [Suspect]
     Active Substance: INTERFERON ALFA-2B
     Dosage: STRENGTH: 25 MU, 2.5 ML MDV, 750,000 UNITS (0.075ML OR 7.5 UNITS) EVERY NIGHT AT BEDTIME.DISCARD 30
     Route: 058
  5. INTRON A [Suspect]
     Active Substance: INTERFERON ALFA-2B
     Indication: PLEURAL MESOTHELIOMA
     Dosage: STRENGTH: 18 MILION IU/ 3 ML, DOSE: 750 000 UNITS (12.5 UNITS ON SYRINGE), DAILY (QD)
     Route: 058
     Dates: start: 20170419
  6. INTRON A [Suspect]
     Active Substance: INTERFERON ALFA-2B
     Dosage: STRENGTH: 18 MILION IU/ 3 ML, DOSE: 750 000 UNITS (12.5 UNITS ON SYRINGE), DAILY (QD)
     Route: 058
     Dates: start: 2020
  7. INTRON A [Suspect]
     Active Substance: INTERFERON ALFA-2B
     Indication: PLEURAL MESOTHELIOMA
     Dosage: STRENGTH: 25 MILION IU/ 2.5 ML, DOSE: 750000 UNITS (0.075 ML OR 7.5 UNITS), EVERY NIGHT AT BEDTIME,
     Route: 058
     Dates: start: 20170602

REACTIONS (10)
  - Product use in unapproved indication [Unknown]
  - Product dose omission issue [Unknown]
  - Adverse event [Not Recovered/Not Resolved]
  - Inability to afford medication [Unknown]
  - Adverse event [Unknown]
  - Product dose omission issue [Unknown]
  - Product dose omission issue [Unknown]
  - Product dose omission issue [Unknown]
  - Nausea [Unknown]
  - Hair disorder [Unknown]

NARRATIVE: CASE EVENT DATE: 2017
